FAERS Safety Report 21637289 (Version 1)
Quarter: 2022Q4

REPORT INFORMATION
  Report Type: Spontaneous
  Country: US (occurrence: US)
  Receive Date: 20221124
  Receipt Date: 20221124
  Transmission Date: 20230113
  Serious: Yes (Other)
  Sender: FDA-Public Use
  Company Number: US-PROCTER+GAMBLE-PH22011683

PATIENT

DRUGS (1)
  1. NYQUIL SEVERE PLUS VAPOCOOL COLD AND FLU [Suspect]
     Active Substance: ACETAMINOPHEN\DEXTROMETHORPHAN HYDROBROMIDE\DOXYLAMINE SUCCINATE\PHENYLEPHRINE HYDROCHLORIDE
     Dosage: IN THE MIDDLE OF THE NIGHT
     Route: 048
     Dates: start: 2022

REACTIONS (4)
  - Sudden cardiac death [Recovering/Resolving]
  - Chest discomfort [Recovering/Resolving]
  - Cardiac disorder [Recovering/Resolving]
  - Discoloured vomit [Recovering/Resolving]
